FAERS Safety Report 22129904 (Version 1)
Quarter: 2023Q1

REPORT INFORMATION
  Report Type: Spontaneous
  Country: US (occurrence: US)
  Receive Date: 20230323
  Receipt Date: 20230323
  Transmission Date: 20230418
  Serious: No
  Sender: FDA-Public Use
  Company Number: US-PFIZER INC-202300122053

PATIENT
  Age: 62 Year
  Sex: Female
  Weight: 70.3 kg

DRUGS (4)
  1. PAXLOVID [Suspect]
     Active Substance: NIRMATRELVIR\RITONAVIR
     Indication: COVID-19 treatment
     Dosage: 3 DF, 2X/DAY (300MG 100MG DOSE PACK)
     Route: 048
     Dates: start: 20230316
  2. ALGAECAL PLUS [Concomitant]
     Dosage: UNK
  3. VITAMIN E NATURAL [TOCOPHEROL] [Concomitant]
     Dosage: UNK
  4. STRONTIUM [Concomitant]
     Active Substance: STRONTIUM
     Dosage: UNK

REACTIONS (5)
  - Nausea [Not Recovered/Not Resolved]
  - Dysgeusia [Recovering/Resolving]
  - Paraesthesia [Unknown]
  - Feeling hot [Unknown]
  - Parosmia [Unknown]

NARRATIVE: CASE EVENT DATE: 20230317
